FAERS Safety Report 11264044 (Version 1)
Quarter: 2015Q3

REPORT INFORMATION
  Report Type: Spontaneous
  Country: US (occurrence: None)
  Receive Date: 20150709
  Receipt Date: 20150709
  Transmission Date: 20151125
  Serious: Yes (Hospitalization, Other)
  Sender: FDA-Public Use
  Company Number: ADR-2015-00216

PATIENT
  Age: 13 Year
  Sex: Female

DRUGS (1)
  1. LIORESAL [Suspect]
     Active Substance: BACLOFEN
     Indication: MUSCLE SPASTICITY

REACTIONS (9)
  - Abdominal distension [None]
  - Condition aggravated [None]
  - Drug effect decreased [None]
  - Muscle spasms [None]
  - Underdose [None]
  - Post procedural complication [None]
  - Musculoskeletal stiffness [None]
  - Pyrexia [None]
  - Muscle spasticity [None]

NARRATIVE: CASE EVENT DATE: 20150122
